FAERS Safety Report 12746470 (Version 1)
Quarter: 2016Q3

REPORT INFORMATION
  Report Type: Spontaneous
  Country: FR (occurrence: FR)
  Receive Date: 20160915
  Receipt Date: 20160915
  Transmission Date: 20161109
  Serious: Yes (Hospitalization)
  Sender: FDA-Public Use
  Company Number: FR-PFIZER INC-2016423838

PATIENT
  Age: 83 Year
  Sex: Female

DRUGS (13)
  1. PREVISCAN /00261401/ [Suspect]
     Active Substance: PENTOXIFYLLINE
     Dosage: UNK
     Route: 048
     Dates: end: 20160804
  2. ODRIK [Concomitant]
     Active Substance: TRANDOLAPRIL
     Dosage: UNK
  3. CARDENSIEL [Concomitant]
     Active Substance: BISOPROLOL FUMARATE
     Dosage: UNK
  4. ADANCOR [Concomitant]
     Active Substance: NICORANDIL
     Dosage: UNK
  5. PRAVASTATIN SODIUM. [Concomitant]
     Active Substance: PRAVASTATIN SODIUM
     Dosage: UNK
  6. EFFEXOR [Suspect]
     Active Substance: VENLAFAXINE HYDROCHLORIDE
     Dosage: UNK
     Route: 048
  7. STABLON [Concomitant]
     Active Substance: TIANEPTINE
     Dosage: UNK
  8. NITRIDERM [Concomitant]
     Active Substance: NITROGLYCERIN
     Dosage: UNK
  9. ESIDREX [Concomitant]
     Active Substance: HYDROCHLOROTHIAZIDE
     Dosage: UNK
  10. LEVOTHYROX [Concomitant]
     Active Substance: LEVOTHYROXINE
     Dosage: UNK
  11. MOPRAL /00661201/ [Concomitant]
     Active Substance: OMEPRAZOLE SODIUM
     Dosage: UNK
  12. LASILIX /00032601/ [Concomitant]
     Active Substance: FUROSEMIDE
     Dosage: UNK
  13. NOOTROPYL [Concomitant]
     Active Substance: PIRACETAM
     Dosage: UNK

REACTIONS (4)
  - Gastric haemorrhage [Recovered/Resolved]
  - Melaena [Recovered/Resolved]
  - Hypovolaemic shock [Recovered/Resolved]
  - Haematemesis [Recovered/Resolved]

NARRATIVE: CASE EVENT DATE: 20160805
